FAERS Safety Report 11315871 (Version 1)
Quarter: 2015Q3

REPORT INFORMATION
  Report Type: Spontaneous
  Country: US (occurrence: None)
  Receive Date: 20150724
  Receipt Date: 20150724
  Transmission Date: 20151125
  Serious: Yes (Disabling, Other)
  Sender: FDA-Public Use
  Company Number: DEP_03209_2015

PATIENT
  Sex: Male
  Weight: 104.33 kg

DRUGS (7)
  1. GRALISE [Suspect]
     Active Substance: GABAPENTIN
     Indication: PAIN
     Dosage: WITHER THE EVENING MEAL
     Route: 048
     Dates: start: 201412
  2. GLIMEPIRIDE. [Concomitant]
     Active Substance: GLIMEPIRIDE
  3. METFORMIN [Concomitant]
     Active Substance: METFORMIN HYDROCHLORIDE
  4. PIOGLITAZONE. [Concomitant]
     Active Substance: PIOGLITAZONE
  5. LOSARTAN. [Concomitant]
     Active Substance: LOSARTAN
  6. GRALISE [Suspect]
     Active Substance: GABAPENTIN
     Indication: OFF LABEL USE
     Dosage: WITHER THE EVENING MEAL
     Route: 048
     Dates: start: 201412
  7. GRALISE [Suspect]
     Active Substance: GABAPENTIN
     Indication: NERVE INJURY
     Dosage: WITHER THE EVENING MEAL
     Route: 048
     Dates: start: 201412

REACTIONS (1)
  - Amnesia [None]
